FAERS Safety Report 24295530 (Version 2)
Quarter: 2025Q3

REPORT INFORMATION
  Report Type: Spontaneous
  Country: US (occurrence: US)
  Receive Date: 20240908
  Receipt Date: 20250901
  Transmission Date: 20251020
  Serious: No
  Sender: SANOFI AVENTIS
  Company Number: US-SA-2024SA257715

PATIENT
  Age: 56 Year
  Sex: Female

DRUGS (1)
  1. DUPIXENT [Suspect]
     Active Substance: DUPILUMAB
     Indication: Dermatitis atopic
     Dosage: 300 MG, QOW
     Route: 058

REACTIONS (7)
  - Alopecia [Unknown]
  - Eczema [Unknown]
  - Pruritus [Unknown]
  - Skin swelling [Unknown]
  - Dry skin [Unknown]
  - Erythema [Unknown]
  - Incorrect dose administered [Unknown]
